FAERS Safety Report 9605263 (Version 1)
Quarter: 2013Q4

REPORT INFORMATION
  Report Type: Spontaneous
  Country: JP (occurrence: JP)
  Receive Date: 20131008
  Receipt Date: 20131008
  Transmission Date: 20140711
  Serious: Yes (Other)
  Sender: FDA-Public Use
  Company Number: JP-GLAXOSMITHKLINE-B0927613A

PATIENT
  Sex: Male

DRUGS (1)
  1. FLUTIDE DISKUS [Suspect]
     Indication: PRODUCT USED FOR UNKNOWN INDICATION
     Route: 055
     Dates: start: 2012

REACTIONS (2)
  - Oropharyngeal gonococcal infection [Not Recovered/Not Resolved]
  - Laryngeal discomfort [Not Recovered/Not Resolved]
